FAERS Safety Report 8199965-4 (Version None)
Quarter: 2012Q1

REPORT INFORMATION
  Report Type: 
  Country: None (occurrence: None)
  Receive Date: 20120312
  Receipt Date: 20120309
  Transmission Date: 20120608
  Serious: No
  Sender: FDA-Public Use
  Company Number: US-PFIZER INC-2012063687

PATIENT
  Sex: Female
  Weight: 45.351 kg

DRUGS (5)
  1. COREG [Concomitant]
     Dosage: 200 MG, 2X/DAY
  2. TEGRETOL [Concomitant]
     Dosage: 200 MG, 2X/DAY
  3. CHANTIX [Suspect]
     Dosage: 1 MG, 2X/DAY
     Route: 048
     Dates: start: 20120201, end: 20120229
  4. LIPITOR [Concomitant]
     Dosage: 25 MG, 2X/DAY
  5. CHANTIX [Suspect]
     Indication: SMOKING CESSATION THERAPY
     Dosage: 0.5 MG, DAILY
     Route: 048
     Dates: start: 20120201, end: 20120201

REACTIONS (1)
  - NIGHTMARE [None]
